FAERS Safety Report 8977157 (Version 1)
Quarter: 2012Q4

REPORT INFORMATION
  Report Type: 
  Country: US (occurrence: US)
  Receive Date: 20121220
  Receipt Date: 20121220
  Transmission Date: 20130627
  Serious: Yes (Other)
  Sender: FDA-Public Use
  Company Number: US-ELI_LILLY_AND_COMPANY-US201212004476

PATIENT
  Age: 50 Year
  Sex: Female

DRUGS (1)
  1. EFFIENT [Suspect]
     Indication: STENT PLACEMENT
     Dosage: 5 mg, UNK
     Dates: start: 20121124

REACTIONS (2)
  - Device occlusion [Unknown]
  - Vaginal haemorrhage [Unknown]
